FAERS Safety Report 6855920-5 (Version None)
Quarter: 2010Q2

REPORT INFORMATION
  Report Type: 
  Country: None (occurrence: None)
  Receive Date: 20100629
  Receipt Date: 20100311
  Transmission Date: 20101027
  Serious: No
  Sender: FDA-Public Use
  Company Number: US-WYE-H14057510

PATIENT
  Age: 60 Year
  Sex: Female

DRUGS (2)
  1. PRISTIQ [Suspect]
     Indication: DEPRESSION
     Dosage: 50 MG 1X PER 1 DAY, ORAL
     Route: 048
     Dates: start: 20100210, end: 20100309
  2. SYNTHROID [Concomitant]

REACTIONS (6)
  - ANXIETY [None]
  - CONTUSION [None]
  - HAEMATOCHEZIA [None]
  - HEART RATE INCREASED [None]
  - MUSCLE SPASMS [None]
  - VAGINAL HAEMORRHAGE [None]
